FAERS Safety Report 16384601 (Version 1)
Quarter: 2019Q2

REPORT INFORMATION
  Report Type: Report from Study
  Country: CZ (occurrence: CZ)
  Receive Date: 20190603
  Receipt Date: 20190603
  Transmission Date: 20190711
  Serious: Yes (Hospitalization, Other)
  Sender: FDA-Public Use
  Company Number: PHHY2017CZ166845

PATIENT
  Age: 4 Year
  Sex: Male
  Weight: 25 kg

DRUGS (8)
  1. TRAMETINIB [Suspect]
     Active Substance: TRAMETINIB
     Indication: METASTATIC MALIGNANT MELANOMA
     Dosage: 0.025 MG/KG, UNK
     Route: 048
     Dates: start: 20171010, end: 20180119
  2. TRAMETINIB [Suspect]
     Active Substance: TRAMETINIB
     Indication: GLIOMA
     Dosage: 0.4 MG/KG, QD (0.025 MG/KG)
     Route: 048
     Dates: start: 20180324, end: 20180517
  3. TRAMETINIB [Suspect]
     Active Substance: TRAMETINIB
     Indication: NEUROFIBROMATOSIS
     Dosage: UNK
     Route: 048
     Dates: start: 20180123, end: 20180310
  4. TRAMETINIB [Suspect]
     Active Substance: TRAMETINIB
     Dosage: UNK
     Route: 065
     Dates: start: 20190102
  5. DABRAFENIB [Suspect]
     Active Substance: DABRAFENIB
     Indication: METASTATIC MALIGNANT MELANOMA
     Dosage: UNK
     Route: 048
     Dates: start: 20171010
  6. TRAMETINIB [Suspect]
     Active Substance: TRAMETINIB
     Dosage: 0.025 MG/KG, UNK
     Route: 048
     Dates: end: 20181218
  7. TRAMETINIB [Suspect]
     Active Substance: TRAMETINIB
     Dosage: 0.032 MG/KG, (0.77MG/DAY)
     Route: 048
     Dates: start: 20181218, end: 20181220
  8. TRAMETINIB [Suspect]
     Active Substance: TRAMETINIB
     Dosage: UNK
     Route: 065

REACTIONS (22)
  - Viral infection [Recovered/Resolved]
  - Ingrowing nail [Recovered/Resolved]
  - Erythema [Recovered/Resolved]
  - Viral upper respiratory tract infection [Recovered/Resolved]
  - Hand dermatitis [Unknown]
  - Aspartate aminotransferase increased [Unknown]
  - Leukopenia [Unknown]
  - Otitis media acute [Recovered/Resolved]
  - Aphthous ulcer [Recovered/Resolved]
  - Aphthous ulcer [Unknown]
  - Lymphangioma [Recovered/Resolved]
  - Upper respiratory tract infection [Recovered/Resolved]
  - Alanine aminotransferase increased [Unknown]
  - Paronychia [Recovered/Resolved]
  - Paronychia [Recovered/Resolved]
  - Blood thyroid stimulating hormone increased [Unknown]
  - Anaemia [Unknown]
  - Blood creatinine increased [Unknown]
  - Rash vesicular [Recovered/Resolved]
  - Viral upper respiratory tract infection [Recovered/Resolved]
  - Dermatitis [Recovering/Resolving]
  - Eosinophilia [Unknown]

NARRATIVE: CASE EVENT DATE: 20171104
